FAERS Safety Report 7712463-4 (Version None)
Quarter: 2011Q3

REPORT INFORMATION
  Report Type: 
  Country: None (occurrence: None)
  Receive Date: 20110826
  Receipt Date: 20110826
  Transmission Date: 20111222
  Serious: Yes (Other)
  Sender: FDA-Public Use
  Company Number: None

PATIENT
  Sex: Female
  Weight: 58.967 kg

DRUGS (1)
  1. LEVAQUIN [Suspect]
     Indication: BRONCHITIS
     Dosage: 1 PILL PER DAY
     Route: 048
     Dates: start: 20110403, end: 20110407

REACTIONS (9)
  - PARANOIA [None]
  - ABASIA [None]
  - PAIN IN EXTREMITY [None]
  - MUSCLE TIGHTNESS [None]
  - PAIN [None]
  - DEPRESSION [None]
  - PARAESTHESIA [None]
  - MOVEMENT DISORDER [None]
  - INSOMNIA [None]
